FAERS Safety Report 17653390 (Version 2)
Quarter: 2020Q2

REPORT INFORMATION
  Report Type: Spontaneous
  Country: US (occurrence: US)
  Receive Date: 20200410
  Receipt Date: 20200504
  Transmission Date: 20200713
  Serious: No
  Sender: FDA-Public Use
  Company Number: US-SA-2020SA088680

PATIENT
  Age: 59 Year
  Sex: Male

DRUGS (3)
  1. DUPIXENT [Suspect]
     Active Substance: DUPILUMAB
     Indication: DERMATITIS ATOPIC
     Dosage: 300 MG, QOW
     Route: 058
     Dates: start: 20190321
  2. CAMPHO-PHENIQUE ANTISEPTIC GEL [Suspect]
     Active Substance: CAMPHOR (NATURAL)\PHENOL
     Indication: PRURITUS
  3. CAMPHO-PHENIQUE ANTISEPTIC GEL [Suspect]
     Active Substance: CAMPHOR (NATURAL)\PHENOL
     Indication: DRY SKIN

REACTIONS (5)
  - Insomnia [Unknown]
  - Skin burning sensation [Unknown]
  - Dry skin [Unknown]
  - Pruritus [Unknown]
  - Dermatitis atopic [Recovering/Resolving]
